FAERS Safety Report 7772349-6 (Version None)
Quarter: 2011Q3

REPORT INFORMATION
  Report Type: 
  Country: None (occurrence: None)
  Receive Date: 20110922
  Receipt Date: 20110413
  Transmission Date: 20111222
  Serious: No
  Sender: FDA-Public Use
  Company Number: US-ASTRAZENECA-2009UW17750

PATIENT
  Age: 26 Year
  Sex: Female
  Weight: 83.9 kg

DRUGS (12)
  1. ABILIFY [Concomitant]
  2. SEROQUEL [Suspect]
     Dosage: 100 MG-300 MG DAILY
     Route: 048
     Dates: start: 20080317
  3. KLONOPIN [Concomitant]
     Indication: ANXIETY
     Dosage: 0.5 MG-1 MG DAILY
     Dates: start: 20080602
  4. CELEXA [Concomitant]
     Dates: start: 20080417
  5. TEGRETOL [Concomitant]
     Dates: start: 20090101
  6. LITHIUM [Concomitant]
     Dates: start: 20050101
  7. TEGRETOL [Concomitant]
     Dates: start: 20090330
  8. SEROQUEL [Suspect]
     Indication: BIPOLAR I DISORDER
     Route: 048
     Dates: start: 19970101
  9. ZOLOFT [Concomitant]
     Dosage: 50 MG - 100 MG
     Dates: start: 20070101
  10. DEPAKOTE [Concomitant]
     Dates: start: 20030101
  11. WELLBUTRIN [Concomitant]
     Dates: start: 20070101
  12. WELLBUTRIN [Concomitant]
     Dosage: 75 MG-150 MG DAILY
     Dates: start: 20080317

REACTIONS (5)
  - OBESITY [None]
  - TYPE 2 DIABETES MELLITUS [None]
  - PALPITATIONS [None]
  - BLOOD CHOLESTEROL INCREASED [None]
  - HYPERLIPIDAEMIA [None]
